FAERS Safety Report 16444208 (Version 1)
Quarter: 2019Q2

REPORT INFORMATION
  Report Type: Spontaneous
  Country: FR (occurrence: FR)
  Receive Date: 20190618
  Receipt Date: 20190618
  Transmission Date: 20190711
  Serious: Yes (Hospitalization)
  Sender: FDA-Public Use
  Company Number: FR-TEVA-2019-FR-1064722

PATIENT
  Age: 26 Year
  Sex: Male

DRUGS (2)
  1. TRAMADOL (CHLORHYDRATE DE) [Suspect]
     Active Substance: TRAMADOL HYDROCHLORIDE
     Route: 065
  2. VALIUM [Suspect]
     Active Substance: DIAZEPAM
     Dosage: UP TO 40 MG / DAY
     Route: 048

REACTIONS (2)
  - Product use issue [Not Recovered/Not Resolved]
  - Drug use disorder [Not Recovered/Not Resolved]
